FAERS Safety Report 15690801 (Version 1)
Quarter: 2018Q4

REPORT INFORMATION
  Report Type: Spontaneous
  Country: US (occurrence: US)
  Receive Date: 20181205
  Receipt Date: 20181205
  Transmission Date: 20190205
  Serious: No
  Sender: FDA-Public Use
  Company Number: US-ASTRAZENECA-2018SF48846

PATIENT
  Age: 25864 Day
  Sex: Female
  Weight: 105.2 kg

DRUGS (4)
  1. BEVESPI AEROSPHERE [Suspect]
     Active Substance: FORMOTEROL FUMARATE\GLYCOPYRROLATE
     Indication: CHRONIC OBSTRUCTIVE PULMONARY DISEASE
     Dosage: 9/4.8, 2 INHALATIONS TWO TIMES A DAY
     Route: 055
     Dates: start: 20181103
  2. PROAIR HFA [Concomitant]
     Active Substance: ALBUTEROL SULFATE
     Indication: ASTHMA
     Dosage: AS REQUIRED
     Route: 055
  3. BEVESPI AEROSPHERE [Suspect]
     Active Substance: FORMOTEROL FUMARATE\GLYCOPYRROLATE
     Indication: COUGH
     Dosage: 9/4.8, 2 INHALATIONS TWO TIMES A DAY
     Route: 055
     Dates: start: 20181103
  4. SYMBICORT [Suspect]
     Active Substance: BUDESONIDE\FORMOTEROL FUMARATE DIHYDRATE
     Dosage: UNKNWON DOSE UNKNOWN
     Route: 055

REACTIONS (6)
  - Product use issue [Unknown]
  - Malaise [Unknown]
  - Weight increased [Unknown]
  - Intentional product misuse [Unknown]
  - Cough [Unknown]
  - Dyspnoea exertional [Unknown]

NARRATIVE: CASE EVENT DATE: 20181103
